FAERS Safety Report 10290018 (Version 1)
Quarter: 2014Q3

REPORT INFORMATION
  Report Type: Spontaneous
  Country: US (occurrence: US)
  Receive Date: 20140710
  Receipt Date: 20140710
  Transmission Date: 20150326
  Serious: Yes (Other)
  Sender: FDA-Public Use
  Company Number: US-ASTRAZENECA-2014SE48446

PATIENT
  Sex: Female

DRUGS (2)
  1. SEROQUEL [Suspect]
     Active Substance: QUETIAPINE FUMARATE
     Dosage: NOT REPORTED
     Route: 048
  2. SEROQUEL [Suspect]
     Active Substance: QUETIAPINE FUMARATE
     Dosage: NOT REPORTED
     Route: 048

REACTIONS (2)
  - Fall [Unknown]
  - Syncope [Unknown]
